FAERS Safety Report 7275664-8 (Version None)
Quarter: 2011Q1

REPORT INFORMATION
  Report Type: 
  Country: None (occurrence: None)
  Receive Date: 20110204
  Receipt Date: 20101021
  Transmission Date: 20110831
  Serious: No
  Sender: FDA-Public Use
  Company Number: US-BAYER-201023214BCC

PATIENT
  Sex: Female

DRUGS (1)
  1. FINACEA [Suspect]
     Dosage: UNK
     Route: 061
     Dates: start: 20101007

REACTIONS (2)
  - FACIAL PAIN [None]
  - SKIN EXFOLIATION [None]
